FAERS Safety Report 25023983 (Version 1)
Quarter: 2025Q1

REPORT INFORMATION
  Report Type: Spontaneous
  Country: US (occurrence: US)
  Receive Date: 20250228
  Receipt Date: 20250228
  Transmission Date: 20250409
  Serious: Yes (Other)
  Sender: MERCK SHARP & DOHME LLC
  Company Number: US-009507513-2257228

PATIENT
  Age: 57 Year
  Sex: Female

DRUGS (1)
  1. KEYTRUDA [Suspect]
     Active Substance: PEMBROLIZUMAB
     Indication: Triple negative breast cancer
     Dosage: 200 MG EVERY 21 DAYS
     Route: 042
     Dates: start: 202402, end: 202502

REACTIONS (6)
  - Loss of consciousness [Unknown]
  - Rash pruritic [Unknown]
  - Gait disturbance [Unknown]
  - Radiotherapy [Unknown]
  - Chemotherapy [Unknown]
  - Surgery [Unknown]

NARRATIVE: CASE EVENT DATE: 20240201
